FAERS Safety Report 5881357-1 (Version None)
Quarter: 2008Q3

REPORT INFORMATION
  Report Type: 
  Country: None (occurrence: None)
  Receive Date: 20080912
  Receipt Date: 20080627
  Transmission Date: 20090109
  Serious: No
  Sender: FDA-Public Use
  Company Number: US-ABBOTT-08P-163-0459878-00

PATIENT
  Sex: Female

DRUGS (6)
  1. HUMIRA [Suspect]
     Indication: PSORIASIS
     Route: 050
     Dates: start: 20080101
  2. LITHIUM CARBONATE [Concomitant]
     Indication: BIPOLAR DISORDER
     Route: 048
  3. GABAPENTIN [Concomitant]
     Indication: BIPOLAR DISORDER
     Route: 048
  4. ESCITALOPRAM OXALATE [Concomitant]
     Indication: BIPOLAR DISORDER
     Route: 048
  5. CLONAZEPAM [Concomitant]
     Indication: BIPOLAR DISORDER
     Dosage: ALLOWED UP TO 2 MG ONCE A DAY BUT AVERAGE 1 TO 1.5
     Route: 048
  6. BIRTH CONTROL [Concomitant]
     Indication: HORMONE REPLACEMENT THERAPY
     Route: 048

REACTIONS (1)
  - INJECTION SITE IRRITATION [None]
